FAERS Safety Report 7248606-9 (Version None)
Quarter: 2011Q1

REPORT INFORMATION
  Report Type: 
  Country: None (occurrence: None)
  Receive Date: 20110128
  Receipt Date: 20101224
  Transmission Date: 20110831
  Serious: Yes (Hospitalization)
  Sender: FDA-Public Use
  Company Number: IT-BAYER-2010-001445

PATIENT
  Sex: Female

DRUGS (5)
  1. ASPIRIN [Suspect]
     Indication: HYPERTENSIVE HEART DISEASE
     Dosage: 1 DF, QD
     Route: 048
     Dates: start: 20000101, end: 20101021
  2. LUCEN [Concomitant]
     Dosage: 20 MG, QD
     Route: 048
  3. ARVENUM [Concomitant]
     Dosage: UNK
     Route: 048
  4. ALLOPURINOL [Concomitant]
     Dosage: 150 MG, QD
     Route: 048
  5. FERRO-GRAD [Concomitant]
     Dosage: 105 MG, QD
     Route: 048

REACTIONS (2)
  - HAEMATEMESIS [None]
  - MELAENA [None]
